FAERS Safety Report 12247469 (Version 2)
Quarter: 2016Q2

REPORT INFORMATION
  Report Type: Report from Study
  Country: US (occurrence: US)
  Receive Date: 20160407
  Receipt Date: 20160427
  Transmission Date: 20160815
  Serious: Yes (Hospitalization)
  Sender: FDA-Public Use
  Company Number: US-BIOGEN-2016BI00215795

PATIENT
  Age: 41 Year
  Sex: Male

DRUGS (1)
  1. AVONEX [Suspect]
     Active Substance: INTERFERON BETA-1A
     Indication: MULTIPLE SCLEROSIS
     Route: 030
     Dates: start: 201406

REACTIONS (17)
  - Gastric dilatation [Unknown]
  - Dyspnoea [Unknown]
  - Bradykinesia [Unknown]
  - Chest pain [Unknown]
  - Headache [Unknown]
  - Malaise [Unknown]
  - Visual impairment [Unknown]
  - Arthropathy [Unknown]
  - Heart rate irregular [Unknown]
  - Chest discomfort [Unknown]
  - Abdominal pain [Unknown]
  - Injection site discharge [Unknown]
  - Injection site haemorrhage [Unknown]
  - Pulmonary oedema [Unknown]
  - Injection site rash [Unknown]
  - Nephrolithiasis [Unknown]
  - Influenza like illness [Not Recovered/Not Resolved]

NARRATIVE: CASE EVENT DATE: 20160313
